FAERS Safety Report 22229989 (Version 1)
Quarter: 2023Q2

REPORT INFORMATION
  Report Type: Report from Study
  Country: ES (occurrence: None)
  Receive Date: 20230419
  Receipt Date: 20230419
  Transmission Date: 20230721
  Serious: Yes (Hospitalization)
  Sender: FDA-Public Use
  Company Number: 2023A089281

PATIENT
  Age: 77 Year
  Sex: Female

DRUGS (4)
  1. OSIMERTINIB [Interacting]
     Active Substance: OSIMERTINIB
     Indication: Non-small cell lung cancer
     Dosage: 80 MG/DAY
     Route: 048
     Dates: start: 202203
  2. OSIMERTINIB [Interacting]
     Active Substance: OSIMERTINIB
     Indication: Non-small cell lung cancer
     Dosage: RESTARTED WITH HALF-DOSE REDUCTION.
     Route: 048
  3. DIGOXIN [Interacting]
     Active Substance: DIGOXIN
     Dosage: 125 MCG/DAY
  4. DIGOXIN [Interacting]
     Active Substance: DIGOXIN
     Dosage: 100 MCG/DAY.

REACTIONS (4)
  - Drug interaction [Unknown]
  - Hypomagnesaemia [Unknown]
  - Diarrhoea [Unknown]
  - Mucosal inflammation [Unknown]
